FAERS Safety Report 7607157 (Version 3)
Quarter: 2017Q4

REPORT INFORMATION
  Report Type: Report from Study
  Country: FI (occurrence: FI)
  Receive Date: 20100927
  Receipt Date: 20171030
  Transmission Date: 20180321
  Serious: Yes (Death, Other)
  Sender: FDA-Public Use
  Company Number: FI-ROCHE-728489

PATIENT

DRUGS (4)
  1. CYCLOSPORIN [Concomitant]
     Active Substance: CYCLOSPORINE
  2. MYCOPHENOLATE MOFETIL. [Suspect]
     Active Substance: MYCOPHENOLATE MOFETIL
     Indication: PROPHYLAXIS AGAINST TRANSPLANT REJECTION
     Route: 065
  3. VALGANCICLOVIR. [Suspect]
     Active Substance: VALGANCICLOVIR
     Indication: ANTIVIRAL PROPHYLAXIS
     Route: 048
  4. BASILIXIMAB [Concomitant]
     Active Substance: BASILIXIMAB

REACTIONS (9)
  - Cerebral haematoma [Fatal]
  - Acute myocardial infarction [Fatal]
  - Breast cancer metastatic [Fatal]
  - Cytomegalovirus infection [Unknown]
  - Hypothermia [Fatal]
  - Hydronephrosis [Unknown]
  - Drug ineffective [Unknown]
  - Gastrointestinal disorder [Unknown]
  - Leukopenia [Unknown]
